FAERS Safety Report 4379732-X (Version None)
Quarter: 2004Q2

REPORT INFORMATION
  Report Type: 
  Country: None (occurrence: None)
  Receive Date: 20040617
  Receipt Date: 20040310
  Transmission Date: 20050107
  Serious: Yes (Death, Life-Threatening)
  Sender: FDA-Public Use
  Company Number: FR-GLAXOSMITHKLINE-B0326288A

PATIENT
  Age: 81 Year
  Sex: Female
  Weight: 61 kg

DRUGS (5)
  1. AUGMENTIN [Suspect]
     Dosage: 2G THREE TIMES PER DAY
     Route: 042
     Dates: start: 20040209, end: 20040219
  2. AXEPIM [Suspect]
     Dosage: 2G TWICE PER DAY
     Route: 042
     Dates: start: 20040209, end: 20040219
  3. PRIMAXIN [Concomitant]
     Route: 065
     Dates: start: 20040206
  4. GENTALLINE [Concomitant]
     Route: 065
     Dates: start: 20040206
  5. DEPAKENE [Concomitant]
     Route: 065

REACTIONS (6)
  - DEATH [None]
  - DISTURBANCE IN ATTENTION [None]
  - ENCEPHALOPATHY [None]
  - OVERDOSE [None]
  - RENAL FAILURE [None]
  - STATUS EPILEPTICUS [None]
